FAERS Safety Report 16134578 (Version 5)
Quarter: 2019Q3

REPORT INFORMATION
  Report Type: Report from Study
  Country: US (occurrence: US)
  Receive Date: 20190329
  Receipt Date: 20190912
  Transmission Date: 20191004
  Serious: Yes (Other)
  Sender: FDA-Public Use
  Company Number: US-B.I. PHARMACEUTICALS,INC./RIDGEFIELD-2018-BI-061461

PATIENT
  Sex: Female

DRUGS (1)
  1. OFEV [Suspect]
     Active Substance: NINTEDANIB
     Indication: PULMONARY FIBROSIS
     Route: 048
     Dates: start: 20181130

REACTIONS (5)
  - Dyspnoea exertional [Not Recovered/Not Resolved]
  - Bronchitis [Recovered/Resolved]
  - Somnolence [Unknown]
  - Pneumonia [Recovered/Resolved]
  - Diarrhoea [Not Recovered/Not Resolved]
